FAERS Safety Report 6600742-3 (Version None)
Quarter: 2010Q1

REPORT INFORMATION
  Report Type: 
  Country: None (occurrence: None)
  Receive Date: 20100223
  Receipt Date: 20100223
  Transmission Date: 20100710
  Serious: Yes (Other)
  Sender: FDA-Public Use
  Company Number: None

PATIENT
  Sex: Female
  Weight: 136.0791 kg

DRUGS (1)
  1. AZATHIOPRINE [Suspect]
     Indication: SJOGREN'S SYNDROME
     Dosage: ONCE DAILY PO
     Route: 048
     Dates: start: 20091110, end: 20100126

REACTIONS (1)
  - INTERSTITIAL LUNG DISEASE [None]
